FAERS Safety Report 7157898-6 (Version None)
Quarter: 2010Q4

REPORT INFORMATION
  Report Type: 
  Country: None (occurrence: None)
  Receive Date: 20101214
  Receipt Date: 20101206
  Transmission Date: 20110411
  Serious: Yes (Other)
  Sender: FDA-Public Use
  Company Number: JP-MERCK-1011USA03568

PATIENT
  Age: 69 Year
  Sex: Female

DRUGS (5)
  1. PEPCID RPD [Suspect]
     Indication: GASTRITIS
     Route: 048
     Dates: start: 20101117, end: 20101117
  2. CELECOXIB [Suspect]
     Indication: OSTEOARTHRITIS
     Route: 048
     Dates: start: 20101117, end: 20101117
  3. CELECOXIB [Suspect]
     Indication: PERIARTHRITIS
     Route: 048
     Dates: start: 20101117, end: 20101117
  4. NORVASC [Concomitant]
     Route: 065
  5. KETOPROFEN [Concomitant]
     Route: 065
     Dates: start: 20101117, end: 20101117

REACTIONS (2)
  - DRUG ERUPTION [None]
  - ECZEMA [None]
